FAERS Safety Report 8888769 (Version 1)
Quarter: 2012Q4

REPORT INFORMATION
  Report Type: Report from Study
  Country: JP (occurrence: JP)
  Receive Date: 20121106
  Receipt Date: 20121106
  Transmission Date: 20130627
  Serious: Yes (Hospitalization, Other)
  Sender: FDA-Public Use
  Company Number: PHHY2012JP100785

PATIENT
  Age: 15 Year
  Sex: Female
  Weight: 16 kg

DRUGS (17)
  1. ICL670A [Suspect]
     Indication: APLASIA PURE RED CELL
     Dosage: 125 mg, on alternate days
     Route: 048
     Dates: start: 20080901, end: 20080929
  2. ICL670A [Suspect]
     Dosage: 125 mg, daily
     Route: 048
     Dates: start: 20080930, end: 20081125
  3. ICL670A [Suspect]
     Dosage: 250 mg, daily
     Route: 048
     Dates: start: 20081126, end: 20081216
  4. ICL670A [Suspect]
     Dosage: 375 mg, daily
     Route: 048
     Dates: start: 20081217, end: 20090120
  5. ICL670A [Suspect]
     Dosage: 500 mg, daily
     Route: 048
     Dates: start: 20090121, end: 20100620
  6. NEORAL [Concomitant]
     Dosage: 60 mg, UNK
     Route: 048
     Dates: start: 20080901
  7. NEORAL [Concomitant]
     Dosage: 70 mg, UNK
     Route: 048
  8. NEORAL [Concomitant]
     Dosage: 90 mg, UNK
     Route: 048
     Dates: end: 20100620
  9. EXCEGRAN [Concomitant]
     Dosage: 100 mg, UNK
     Route: 048
     Dates: start: 20080901, end: 20100620
  10. RIVOTRIL [Concomitant]
     Dosage: UNK UKN, UNK
     Route: 048
     Dates: start: 20080901, end: 20100620
  11. PREDNISOLONE [Concomitant]
     Dosage: 4 mg, UNK
     Route: 048
     Dates: start: 20080901
  12. PREDNISOLONE [Concomitant]
     Dosage: 3 mg, UNK
     Route: 048
     Dates: end: 20100620
  13. BAKTAR [Concomitant]
     Indication: PROPHYLAXIS
     Dosage: 1 DF, UNK
     Route: 048
     Dates: start: 20080901
  14. BAKTAR [Concomitant]
     Dosage: UNK UKN, UNK
     Route: 048
     Dates: end: 20100620
  15. FOSAMAC [Concomitant]
     Dosage: 125 mg, UNK
     Route: 048
     Dates: start: 20080901
  16. FOSAMAC [Concomitant]
     Dosage: UNK UKN, UNK
     Route: 048
     Dates: end: 20100620
  17. ESTRANA [Concomitant]
     Dosage: 0.72 mg, UNK
     Route: 062
     Dates: start: 20090127, end: 20100620

REACTIONS (8)
  - Blood urea increased [Recovered/Resolved]
  - Aspartate aminotransferase increased [Recovered/Resolved]
  - Alanine aminotransferase increased [Recovered/Resolved]
  - Gamma-glutamyltransferase increased [Recovered/Resolved]
  - Graft versus host disease [Recovered/Resolved]
  - Cholelithiasis [Unknown]
  - Pancreatitis acute [Unknown]
  - Abdominal pain [Unknown]
